FAERS Safety Report 10170036 (Version 1)
Quarter: 2014Q2

REPORT INFORMATION
  Report Type: Spontaneous
  Country: US (occurrence: US)
  Receive Date: 20140513
  Receipt Date: 20140513
  Transmission Date: 20141212
  Serious: No
  Sender: FDA-Public Use
  Company Number: US-PFIZER INC-2014130668

PATIENT
  Sex: 0

DRUGS (2)
  1. SERTRALINE [Suspect]
     Indication: ANXIETY
     Dosage: 75 MG, UNK
  2. SERTRALINE [Suspect]
     Indication: DEPRESSION
     Dosage: 50 MG, UNK

REACTIONS (1)
  - Feeling abnormal [Unknown]
